FAERS Safety Report 16250744 (Version 1)
Quarter: 2019Q2

REPORT INFORMATION
  Report Type: Spontaneous
  Country: KR (occurrence: KR)
  Receive Date: 20190429
  Receipt Date: 20190429
  Transmission Date: 20190711
  Serious: Yes (Hospitalization, Other)
  Sender: FDA-Public Use
  Company Number: KR-009507513-1903KOR012721

PATIENT
  Sex: Male

DRUGS (26)
  1. HARNAL [Concomitant]
     Active Substance: TAMSULOSIN HYDROCHLORIDE
     Dosage: QUNATITY 1, DAYS 26
     Route: 048
     Dates: start: 20190309, end: 20190318
  2. OMAP ONE PERI [Concomitant]
     Dosage: QUANTITY 1, DAYS 3
     Dates: start: 20190310, end: 20190312
  3. TRIDOL (BUPRENORPHINE) [Concomitant]
     Dosage: QUANTITY 4, DAYS 1
     Dates: start: 20190309, end: 20190309
  4. CEFOTAXIME SODIUM [Concomitant]
     Active Substance: CEFOTAXIME SODIUM
     Dosage: QUANTITY 2, DAY 1
     Dates: start: 20190309, end: 20190309
  5. LACIDOFIL [Concomitant]
     Active Substance: LACTOBACILLUS ACIDOPHILUS\LACTOBACILLUS RHAMNOSUS
     Dosage: QUANTITY: 2, DAYS: 2
     Route: 048
     Dates: start: 20190310, end: 20190311
  6. KEYTRUDA [Suspect]
     Active Substance: PEMBROLIZUMAB
     Indication: CHOLANGIOCARCINOMA
     Dosage: QUANTITY: 2, DAYS: 1
     Dates: start: 20190311
  7. HINECHOL [Concomitant]
     Dosage: QUANTITY 1, 3 DAYS
     Route: 048
     Dates: start: 20190309, end: 20190313
  8. DUPHALAC [Concomitant]
     Active Substance: LACTULOSE
     Dosage: QUANTITY 3, 2 DAYS
     Route: 048
     Dates: start: 20190310, end: 20190311
  9. WARFARIN DAE HWA [Concomitant]
     Dosage: QUANTITY 1, DAYS 6
     Route: 048
     Dates: start: 20190310, end: 20190316
  10. ALDACTONE [Concomitant]
     Active Substance: SPIRONOLACTONE
     Dosage: QUANTITY :2, DAYS 2
     Route: 048
     Dates: start: 20190310, end: 20190311
  11. LACIDOFIL [Concomitant]
     Active Substance: LACTOBACILLUS ACIDOPHILUS\LACTOBACILLUS RHAMNOSUS
     Dosage: QUANTITY: 1, DAYS: 1
     Route: 048
     Dates: start: 20190309, end: 20190309
  12. SODIUM CHLORIDE. [Concomitant]
     Active Substance: SODIUM CHLORIDE
     Dosage: 0.9 % ISOTONIC SODIUM CHLORIDE INJECTION 50 ML, QUANTITY 1, DAYS 2
     Dates: start: 20190311, end: 20190311
  13. CEFOTAXIME SODIUM [Concomitant]
     Active Substance: CEFOTAXIME SODIUM
     Dosage: QUANTITY 1, DAY 2
     Dates: start: 20190310, end: 20190315
  14. PROAMIN [Concomitant]
     Dosage: QUNATITY 1, DAY 1
     Dates: start: 20190309, end: 20190309
  15. OXYGEN. [Concomitant]
     Active Substance: OXYGEN
     Dosage: QUANTITY 1, DAYS 1
     Dates: start: 20190311, end: 20190311
  16. DUPHALAC [Concomitant]
     Active Substance: LACTULOSE
     Dosage: QUANATITY 1, 2 DAYS
     Route: 048
     Dates: start: 20190309, end: 20190312
  17. KLENZO [Concomitant]
     Dosage: QUANTITY 2, DAYS 2
     Dates: start: 20190311, end: 20190311
  18. LIPITOR [Concomitant]
     Active Substance: ATORVASTATIN CALCIUM
     Dosage: QUANTITY 1, DAYS 3
     Route: 048
     Dates: start: 20190309, end: 20190311
  19. MEGESTROL ACETATE. [Concomitant]
     Active Substance: MEGESTROL ACETATE
     Dosage: QUANTITY 1, DAYS 3
     Route: 048
     Dates: start: 20190309, end: 20190311
  20. HINECHOL [Concomitant]
     Dosage: QUANTITY 3, DAYS 24
     Route: 048
     Dates: start: 20190310, end: 20190318
  21. TARGIN [Concomitant]
     Active Substance: NALOXONE HYDROCHLORIDE\OXYCODONE HYDROCHLORIDE
     Dosage: QUNATITY 1, DAY 1
     Route: 048
     Dates: start: 20190310
  22. TARGIN [Concomitant]
     Active Substance: NALOXONE HYDROCHLORIDE\OXYCODONE HYDROCHLORIDE
     Dosage: QUNATITY 2, DAYS 20
     Route: 048
     Dates: start: 20190310, end: 20190318
  23. SODIUM CHLORIDE. [Concomitant]
     Active Substance: SODIUM CHLORIDE
     Dosage: QUANTITY 3, DAYS 8
     Dates: start: 20190310, end: 20190317
  24. OXYGEN. [Concomitant]
     Active Substance: OXYGEN
     Dosage: QUANTITY 1, DAYS 1
     Dates: start: 20190311, end: 20190311
  25. ALDACTONE [Concomitant]
     Active Substance: SPIRONOLACTONE
     Dosage: QUANTITY :1, DAYS 1
     Route: 048
     Dates: start: 20190309, end: 20190309
  26. MEROPEN [Concomitant]
     Active Substance: MEROPENEM
     Dosage: QUANTITY 6, DAYS 7
     Dates: start: 20190310, end: 20190316

REACTIONS (6)
  - Central venous catheterisation [Unknown]
  - Product use in unapproved indication [Unknown]
  - Adverse event [Unknown]
  - Chronic obstructive pulmonary disease [Unknown]
  - Packed red blood cell transfusion [Unknown]
  - Adverse event [Unknown]

NARRATIVE: CASE EVENT DATE: 201903
